FAERS Safety Report 10119326 (Version 2)
Quarter: 2014Q2

REPORT INFORMATION
  Report Type: Spontaneous
  Country: FR (occurrence: FR)
  Receive Date: 20140425
  Receipt Date: 20140428
  Transmission Date: 20141212
  Serious: Yes (Hospitalization)
  Sender: FDA-Public Use
  Company Number: FR-PFIZER INC-2014111978

PATIENT
  Age: 39 Year
  Sex: Male

DRUGS (6)
  1. LYRICA [Suspect]
     Indication: ANAESTHETIC PREMEDICATION
     Dosage: 75 MG, SINGLE
     Route: 048
     Dates: start: 20140117, end: 20140117
  2. MEPIVACAINE ^BRAUN^ [Suspect]
     Indication: NERVE BLOCK
     Dosage: 400 MG IN TOTAL
     Route: 053
     Dates: start: 20140117, end: 20140117
  3. PROFENID [Suspect]
     Indication: PAIN
     Dosage: 100 MG, SINGLE
     Route: 042
     Dates: start: 20140117, end: 20140117
  4. RAPIFEN [Suspect]
     Indication: PAIN
     Dosage: 0.5 MG, SINGLE
     Route: 042
     Dates: start: 20140117, end: 20140117
  5. PARACETAMOL PANPHARMA [Suspect]
     Indication: PAIN
     Dosage: 1000 MG, SINGLE
     Route: 042
     Dates: start: 20140117, end: 20140117
  6. ATARAX [Suspect]
     Indication: ANAESTHETIC PREMEDICATION
     Dosage: 25 MG, IN TOTAL
     Route: 048
     Dates: start: 20140117, end: 20140117

REACTIONS (2)
  - Off label use [Recovered/Resolved]
  - Epilepsy [Recovered/Resolved]
